FAERS Safety Report 10612225 (Version 1)
Quarter: 2014Q4

REPORT INFORMATION
  Report Type: Report from Study
  Country: US (occurrence: US)
  Receive Date: 20141127
  Receipt Date: 20141127
  Transmission Date: 20150529
  Serious: Yes (Other)
  Sender: FDA-Public Use
  Company Number: US-ROCHE-1497070

PATIENT
  Age: 61 Year
  Sex: Female

DRUGS (6)
  1. PERJETA [Suspect]
     Active Substance: PERTUZUMAB
     Indication: BREAST CANCER METASTATIC
     Dosage: 3LINE DOSE
     Route: 065
  2. XELODA [Suspect]
     Active Substance: CAPECITABINE
     Indication: BREAST CANCER METASTATIC
     Dosage: 2 LINE DOSE
     Route: 065
  3. FASLODEX [Concomitant]
     Active Substance: FULVESTRANT
  4. HERCEPTIN [Suspect]
     Active Substance: TRASTUZUMAB
     Indication: BREAST CANCER METASTATIC
     Dosage: 1L AND 2L DOSE
     Route: 065
  5. TAXOTERE [Concomitant]
     Active Substance: DOCETAXEL
  6. HERCEPTIN [Suspect]
     Active Substance: TRASTUZUMAB
     Dosage: 3 LINE DOSE
     Route: 065

REACTIONS (1)
  - Cardiotoxicity [Unknown]
